FAERS Safety Report 13409811 (Version 1)
Quarter: 2017Q2

REPORT INFORMATION
  Report Type: Spontaneous
  Country: US (occurrence: US)
  Receive Date: 20170406
  Receipt Date: 20170406
  Transmission Date: 20170830
  Serious: No
  Sender: FDA-Public Use
  Company Number: US-ELI_LILLY_AND_COMPANY-US201608001515

PATIENT
  Sex: Female

DRUGS (2)
  1. CYMBALTA [Suspect]
     Active Substance: DULOXETINE HYDROCHLORIDE
     Indication: PRODUCT USED FOR UNKNOWN INDICATION
     Dosage: 60 MG, QD
     Route: 065
     Dates: start: 20121023
  2. CYMBALTA [Suspect]
     Active Substance: DULOXETINE HYDROCHLORIDE
     Dosage: 30 MG, QD
     Route: 065
     Dates: start: 20121009

REACTIONS (23)
  - Irritability [Unknown]
  - Lethargy [Unknown]
  - Dysphoria [Unknown]
  - Agitation [Unknown]
  - Drug withdrawal syndrome [Unknown]
  - Constipation [Unknown]
  - Confusional state [Unknown]
  - Nausea [Unknown]
  - Dizziness [Unknown]
  - Tremor [Unknown]
  - Migraine [Unknown]
  - Sexual dysfunction [Unknown]
  - Affect lability [Unknown]
  - Fatigue [Unknown]
  - Arthralgia [Unknown]
  - Congenital hearing disorder [Unknown]
  - Paraesthesia [Unknown]
  - Tinnitus [Unknown]
  - Vertigo [Unknown]
  - Hypomania [Unknown]
  - Headache [Unknown]
  - Anxiety [Unknown]
  - Insomnia [Unknown]
